FAERS Safety Report 7686245-6 (Version None)
Quarter: 2011Q3

REPORT INFORMATION
  Report Type: 
  Country: None (occurrence: None)
  Receive Date: 20110816
  Receipt Date: 20110804
  Transmission Date: 20111222
  Serious: Yes (Hospitalization)
  Sender: FDA-Public Use
  Company Number: ES-ELI_LILLY_AND_COMPANY-ES201108001491

PATIENT
  Sex: Male

DRUGS (3)
  1. CARBOPLATIN [Suspect]
     Indication: NON-SMALL CELL LUNG CANCER
     Dosage: 355 MG, UNK
     Route: 042
     Dates: start: 20101222
  2. GEMCITABINE HYDROCHLORIDE [Suspect]
     Dosage: 1520 MG, UNK
     Route: 042
     Dates: start: 20110323
  3. GEMCITABINE HYDROCHLORIDE [Suspect]
     Indication: NON-SMALL CELL LUNG CANCER
     Dosage: 2375 MG, UNK
     Route: 042
     Dates: start: 20101222

REACTIONS (4)
  - ANAEMIA [None]
  - THROMBOCYTOPENIA [None]
  - NEUTROPENIA [None]
  - RECTAL HAEMORRHAGE [None]
